FAERS Safety Report 6623337-4 (Version None)
Quarter: 2010Q1

REPORT INFORMATION
  Report Type: 
  Country: None (occurrence: None)
  Receive Date: 20100310
  Receipt Date: 20091130
  Transmission Date: 20100710
  Serious: No
  Sender: FDA-Public Use
  Company Number: US-BIOGENIDEC-2009BI039027

PATIENT
  Sex: Female

DRUGS (1)
  1. AVONEX [Suspect]
     Indication: MULTIPLE SCLEROSIS
     Route: 030
     Dates: start: 20071012

REACTIONS (6)
  - ASTHMA [None]
  - COORDINATION ABNORMAL [None]
  - FATIGUE [None]
  - FIBROMYALGIA [None]
  - HYPOAESTHESIA [None]
  - SLEEP APNOEA SYNDROME [None]
